FAERS Safety Report 7742728-1 (Version None)
Quarter: 2011Q3

REPORT INFORMATION
  Report Type: 
  Country: None (occurrence: None)
  Receive Date: 20110906
  Receipt Date: 20110829
  Transmission Date: 20111222
  Serious: Yes (Death)
  Sender: FDA-Public Use
  Company Number: 2011SP001747

PATIENT
  Age: 64 Year
  Sex: Male

DRUGS (7)
  1. METHYCOBAL [Concomitant]
  2. DEXTROMETHORPHAN HYDROBROMIDE [Concomitant]
  3. MAGNESIUM SULFATE [Concomitant]
  4. DECADRON [Concomitant]
  5. URIEF [Concomitant]
  6. ASTOMIN [Concomitant]
  7. REMERON [Suspect]
     Indication: DEPRESSION
     Dosage: 15 MG;QD;PO
     Route: 048
     Dates: start: 20101130, end: 20101213

REACTIONS (4)
  - CANCER PAIN [None]
  - INSOMNIA [None]
  - COUGH [None]
  - METASTASES TO LUNG [None]
